FAERS Safety Report 4479147-X (Version None)
Quarter: 2004Q3

REPORT INFORMATION
  Report Type: 
  Country: None (occurrence: None)
  Receive Date: 20040923
  Receipt Date: 20040802
  Transmission Date: 20050211
  Serious: Yes (Other)
  Sender: FDA-Public Use
  Company Number: 207234

PATIENT
  Age: 57 Year
  Sex: Male
  Weight: 115.6 kg

DRUGS (7)
  1. AVASTIN [Suspect]
     Indication: COLON CANCER METASTATIC
     Dosage: 575 MG, Q2W, INTRAVENOUS
     Route: 042
     Dates: start: 20040518
  2. 5-FLUOROURACIL (FLUOROURACIL0 [Concomitant]
  3. OXALIPLATIN [Concomitant]
  4. LEUCOVORIN CALCIUM [Concomitant]
  5. NORVASC [Concomitant]
  6. COMPAZINE [Concomitant]
  7. ATIVAN [Concomitant]

REACTIONS (1)
  - THROMBOSIS [None]
